FAERS Safety Report 8168718-5 (Version None)
Quarter: 2012Q1

REPORT INFORMATION
  Report Type: 
  Country: None (occurrence: None)
  Receive Date: 20120103
  Receipt Date: 20111116
  Transmission Date: 20120608
  Serious: No
  Sender: FDA-Public Use
  Company Number: AE-2011-003604

PATIENT
  Age: 54 Year
  Sex: Female
  Weight: 81.6475 kg

DRUGS (4)
  1. MULTI-VITAMINS [Concomitant]
  2. RIBAPAK (RIBAVIRIN) [Concomitant]
  3. INCIVEK [Suspect]
     Dosage: 2250 MG (750 MG, 3 IN 1 D), ORAL
     Route: 048
     Dates: start: 20110819, end: 20111112
  4. PEGASYS [Concomitant]

REACTIONS (2)
  - FATIGUE [None]
  - DYSPNOEA [None]
